FAERS Safety Report 23485765 (Version 1)
Quarter: 2024Q1

REPORT INFORMATION
  Report Type: Report from Study
  Country: US (occurrence: US)
  Receive Date: 20240206
  Receipt Date: 20240206
  Transmission Date: 20240410
  Serious: No
  Sender: FDA-Public Use
  Company Number: US-ORG100014127-2023000224

PATIENT
  Age: 57 Year
  Sex: Male

DRUGS (7)
  1. LYSODREN [Suspect]
     Active Substance: MITOTANE
     Indication: Adrenal gland cancer
     Dosage: 02 TABLETS DAILY
     Route: 048
     Dates: start: 20230203
  2. LYSODREN [Suspect]
     Active Substance: MITOTANE
     Indication: Adrenal gland cancer
     Dosage: 500 MG: 02 TABLETS TWICE DAILY
     Route: 048
  3. AMLODIPINE [Concomitant]
     Active Substance: AMLODIPINE BESYLATE
     Indication: Product used for unknown indication
     Route: 048
  4. Gabapentin cap 400 mg [Concomitant]
     Indication: Product used for unknown indication
     Route: 048
  5. Hydrocorty cream 0.5% [Concomitant]
     Indication: Product used for unknown indication
     Route: 048
  6. Ibuprofen tablet 200 mg [Concomitant]
     Indication: Product used for unknown indication
     Route: 048
  7. Lisinopril tablet 5 mg [Concomitant]
     Indication: Product used for unknown indication
     Route: 048

REACTIONS (2)
  - Abdominal discomfort [Not Recovered/Not Resolved]
  - Diarrhoea [Not Recovered/Not Resolved]

NARRATIVE: CASE EVENT DATE: 20230101
